FAERS Safety Report 20745208 (Version 2)
Quarter: 2022Q3

REPORT INFORMATION
  Report Type: Spontaneous
  Country: RO (occurrence: RO)
  Receive Date: 20220425
  Receipt Date: 20220705
  Transmission Date: 20221027
  Serious: No
  Sender: FDA-Public Use
  Company Number: RO-NOVARTISPH-NVSC2022RO091457

PATIENT
  Age: 58 Year
  Sex: Male

DRUGS (1)
  1. COSENTYX [Suspect]
     Active Substance: SECUKINUMAB
     Indication: Psoriasis
     Dosage: 300 MG, QMO
     Route: 058
     Dates: start: 20211101, end: 20220418

REACTIONS (1)
  - Interferon gamma release assay positive [Unknown]

NARRATIVE: CASE EVENT DATE: 20220418
